FAERS Safety Report 24613959 (Version 1)
Quarter: 2024Q4

REPORT INFORMATION
  Report Type: Report from Study
  Country: BR (occurrence: BR)
  Receive Date: 20241113
  Receipt Date: 20241113
  Transmission Date: 20250114
  Serious: Yes (Other)
  Sender: JOHNSON AND JOHNSON
  Company Number: BR-JNJFOC-20241125134

PATIENT
  Age: 16 Year
  Sex: Male
  Weight: 67 kg

DRUGS (3)
  1. INFLIXIMAB [Suspect]
     Active Substance: INFLIXIMAB
     Indication: Colitis ulcerative
     Route: 041
     Dates: start: 20230202
  2. INFLIXIMAB [Suspect]
     Active Substance: INFLIXIMAB
     Indication: Colitis
  3. CYANOCOBALAMIN [Concomitant]
     Active Substance: CYANOCOBALAMIN

REACTIONS (6)
  - Colitis [Unknown]
  - Laboratory test abnormal [Unknown]
  - Vitamin B12 decreased [Unknown]
  - Blood cholesterol increased [Unknown]
  - Faecal calprotectin increased [Unknown]
  - Inappropriate schedule of product administration [Unknown]
